FAERS Safety Report 24545506 (Version 1)
Quarter: 2024Q4

REPORT INFORMATION
  Report Type: Spontaneous
  Country: US (occurrence: None)
  Receive Date: 20241024
  Receipt Date: 20241024
  Transmission Date: 20250115
  Serious: Yes (Death)
  Sender: Public
  Company Number: None

PATIENT
  Age: 66 Year
  Sex: Female

DRUGS (1)
  1. ERLOTINIB [Suspect]
     Active Substance: ERLOTINIB
     Indication: Bronchial carcinoma
     Dosage: FREQUENCY : DAILY;?
     Dates: start: 20230207, end: 20241021

REACTIONS (1)
  - Death [None]

NARRATIVE: CASE EVENT DATE: 20241021
